FAERS Safety Report 5728291-5 (Version None)
Quarter: 2008Q2

REPORT INFORMATION
  Report Type: 
  Country: None (occurrence: None)
  Receive Date: 20080502
  Receipt Date: 20080502
  Transmission Date: 20081010
  Serious: Yes (Other)
  Sender: FDA-Public Use
  Company Number: None

PATIENT
  Age: 40 Year
  Sex: Female
  Weight: 56.6996 kg

DRUGS (1)
  1. PAXIL [Suspect]
     Indication: DEPRESSION
     Dosage: LOW DOSAGE PO
     Route: 048
     Dates: start: 20020901, end: 20021201

REACTIONS (2)
  - PARAESTHESIA [None]
  - WEIGHT INCREASED [None]
